FAERS Safety Report 8273167-5 (Version None)
Quarter: 2012Q2

REPORT INFORMATION
  Report Type: 
  Country: None (occurrence: None)
  Receive Date: 20120411
  Receipt Date: 20120402
  Transmission Date: 20120825
  Serious: Yes (Hospitalization, Other)
  Sender: FDA-Public Use
  Company Number: US-JNJFOC-20100806136

PATIENT
  Sex: Female

DRUGS (22)
  1. VITAMINS NOS [Concomitant]
     Route: 065
  2. LEVAQUIN [Suspect]
     Indication: STAPHYLOCOCCAL INFECTION
     Route: 048
     Dates: start: 20030101, end: 20030101
  3. LISINOPRIL [Concomitant]
     Indication: HYPERTENSION
     Route: 065
  4. HYDROCHLOROTHIAZIDE [Concomitant]
     Indication: HYPERTENSION
     Route: 065
  5. ALBUTEROL [Concomitant]
     Indication: ASTHMA
     Route: 065
  6. LEVAQUIN [Suspect]
     Dosage: 150 ML
     Route: 042
  7. GLYBURIDE [Concomitant]
     Indication: DIABETES MELLITUS
     Route: 065
  8. LEVAQUIN [Suspect]
     Route: 048
  9. LEVAQUIN [Suspect]
     Dosage: 150 ML
     Route: 042
  10. LEVAQUIN [Suspect]
     Indication: SEPSIS
     Route: 048
  11. LEVAQUIN [Suspect]
     Route: 048
     Dates: start: 20030101, end: 20030101
  12. LEVAQUIN [Suspect]
     Route: 048
  13. METFORMIN HCL [Concomitant]
     Indication: DIABETES MELLITUS
     Route: 065
  14. CARVEDILOL [Concomitant]
     Indication: BLOOD CHOLESTEROL DECREASED
     Route: 065
  15. LEVAQUIN [Suspect]
     Indication: VULVAL ABSCESS
     Route: 048
     Dates: start: 20030101, end: 20030101
  16. LEVAQUIN [Suspect]
     Dosage: 150 ML
     Route: 042
  17. CRESTOR [Concomitant]
     Indication: BLOOD CHOLESTEROL DECREASED
     Route: 065
  18. VICTOZA [Concomitant]
     Indication: DIABETES MELLITUS
     Route: 065
  19. LEVEMIR [Concomitant]
     Indication: DIABETES MELLITUS
     Route: 065
  20. PRAVACHOL [Concomitant]
     Indication: BLOOD CHOLESTEROL DECREASED
     Route: 065
  21. HUMALOG [Concomitant]
     Indication: DIABETES MELLITUS
     Route: 065
  22. ADVAIR DISKUS 100/50 [Concomitant]
     Indication: ASTHMA
     Route: 065

REACTIONS (3)
  - TENDON RUPTURE [None]
  - ROTATOR CUFF SYNDROME [None]
  - TENDONITIS [None]
